FAERS Safety Report 19873285 (Version 6)
Quarter: 2022Q1

REPORT INFORMATION
  Report Type: Other
  Country: CN (occurrence: CN)
  Receive Date: 20210923
  Receipt Date: 20220118
  Transmission Date: 20220423
  Serious: Yes (Other)
  Sender: FDA-Public Use
  Company Number: CN-002147023-NVSC2021CN208760

PATIENT
  Age: 73 Year
  Sex: Female
  Weight: 62 kg

DRUGS (13)
  1. RANIBIZUMAB [Suspect]
     Active Substance: RANIBIZUMAB
     Indication: Neovascular age-related macular degeneration
     Dosage: 0.5 MG
     Route: 065
     Dates: start: 20190418
  2. RANIBIZUMAB [Suspect]
     Active Substance: RANIBIZUMAB
     Route: 065
     Dates: start: 20190612
  3. POVIDONE-IODINE [Concomitant]
     Active Substance: POVIDONE-IODINE
     Indication: Neovascular age-related macular degeneration
     Dosage: UNK
     Route: 065
     Dates: start: 20190418, end: 20190418
  4. TOBRADEX [Concomitant]
     Active Substance: DEXAMETHASONE\TOBRAMYCIN
     Indication: Intraocular lens implant
     Dosage: 2-3 DROPS QID
     Route: 031
     Dates: start: 20190330, end: 20190430
  5. TOBRADEX [Concomitant]
     Active Substance: DEXAMETHASONE\TOBRAMYCIN
     Indication: Lens extraction
  6. IRBESARTAN [Concomitant]
     Active Substance: IRBESARTAN
     Indication: Hypertension
     Dosage: 1 DF
     Route: 048
     Dates: start: 2011
  7. LIPITOR [Concomitant]
     Active Substance: ATORVASTATIN CALCIUM
     Indication: Coronary artery disease
     Dosage: 1 DF
     Route: 048
     Dates: start: 2017
  8. METOPROLOL SUCCINATE [Concomitant]
     Active Substance: METOPROLOL SUCCINATE
     Indication: Hypertension
     Dosage: 0.5 DF (1/2 TABLET)
     Route: 048
     Dates: start: 2011
  9. PHENOBARBITAL [Concomitant]
     Active Substance: PHENOBARBITAL
     Indication: Prophylaxis
     Dosage: 90 MG
     Route: 048
     Dates: start: 20190611, end: 20190612
  10. AUGENTROPFEN [Concomitant]
     Indication: Neovascular age-related macular degeneration
     Dosage: 1 DRP
     Route: 031
     Dates: start: 20190510
  11. AUGENTROPFEN [Concomitant]
     Indication: Prophylaxis
     Dosage: 1 DRP
     Route: 031
     Dates: start: 20191007
  12. PRANOPROFEN [Concomitant]
     Active Substance: PRANOPROFEN
     Indication: Neovascular age-related macular degeneration
     Dosage: UNK ML
     Route: 031
     Dates: start: 20190509, end: 20190605
  13. ASPIRIN [Concomitant]
     Active Substance: ASPIRIN
     Indication: Hypertension
     Dosage: 1 DF
     Route: 048
     Dates: start: 20191204, end: 20210701

REACTIONS (4)
  - Macular hole [Not Recovered/Not Resolved]
  - Injection site haemorrhage [Recovered/Resolved]
  - Injection site haemorrhage [Not Recovered/Not Resolved]
  - Conjunctivitis [Not Recovered/Not Resolved]

NARRATIVE: CASE EVENT DATE: 20190418
